FAERS Safety Report 20320889 (Version 2)
Quarter: 2022Q2

REPORT INFORMATION
  Report Type: Spontaneous
  Country: JP (occurrence: JP)
  Receive Date: 20220111
  Receipt Date: 20220404
  Transmission Date: 20220721
  Serious: Yes (Hospitalization, Other)
  Sender: FDA-Public Use
  Company Number: JP-Accord-248305

PATIENT
  Age: 72 Year
  Sex: Male

DRUGS (2)
  1. CAPECITABINE [Suspect]
     Active Substance: CAPECITABINE
     Indication: Rectal cancer
     Dosage: 1,500 MG / M2 / DAY?FROM THE 6TH COURSE, 14 CONSECUTIVE?DAYS
     Route: 048
  2. OXALIPLATIN [Suspect]
     Active Substance: OXALIPLATIN
     Indication: Rectal cancer
     Dosage: 1ST DAY ADMINISTRATION?1 COURSE 21 DAYS

REACTIONS (4)
  - Hyperammonaemia [Recovered/Resolved]
  - Splenorenal shunt [Recovered/Resolved]
  - Palmar-plantar erythrodysaesthesia syndrome [Unknown]
  - Venoocclusive liver disease [Recovered/Resolved]
